FAERS Safety Report 23145840 (Version 1)
Quarter: 2023Q4

REPORT INFORMATION
  Report Type: Other
  Country: ES (occurrence: ES)
  Receive Date: 20231103
  Receipt Date: 20231103
  Transmission Date: 20240110
  Serious: Yes (Other)
  Sender: FDA-Public Use
  Company Number: ES-SCALL-2023-ES-089646

PATIENT
  Age: 45 Year
  Sex: Female

DRUGS (2)
  1. DUTASTERIDE [Suspect]
     Active Substance: DUTASTERIDE
     Indication: Mesotherapy
     Route: 065
  2. DUTASTERIDE [Suspect]
     Active Substance: DUTASTERIDE
     Indication: Androgenetic alopecia

REACTIONS (1)
  - Dermatitis contact [Unknown]
